FAERS Safety Report 15334368 (Version 15)
Quarter: 2021Q3

REPORT INFORMATION
  Report Type: Spontaneous
  Country: US (occurrence: US)
  Receive Date: 20180830
  Receipt Date: 20210804
  Transmission Date: 20211014
  Serious: Yes (Death, Hospitalization, Other)
  Sender: FDA-Public Use
  Company Number: US-PFIZER INC-2018345719

PATIENT
  Age: 79 Year
  Sex: Female
  Weight: 95 kg

DRUGS (28)
  1. BOSULIF [Suspect]
     Active Substance: BOSUTINIB MONOHYDRATE
     Dosage: 400 MG, 1X/DAY
  2. BOSULIF [Suspect]
     Active Substance: BOSUTINIB MONOHYDRATE
     Dosage: 300 MG, DAILY
     Dates: start: 20160718
  3. BOSULIF [Suspect]
     Active Substance: BOSUTINIB MONOHYDRATE
     Dosage: 500 MG, 1X/DAY
     Route: 048
     Dates: start: 2018
  4. VITAMIN B COMPLEX [Concomitant]
     Active Substance: CYANOCOBALAMIN\DEXPANTHENOL\NIACINAMIDE\PYRIDOXINE HYDROCHLORIDE\RIBOFLAVIN 5^-PHOSPHATE SODIUM\THIAMINE HYDROCHLORIDE\VITAMIN B COMPLEX
     Dosage: 1 DF, DAILY
  5. ALLEGRA [Concomitant]
     Active Substance: FEXOFENADINE HYDROCHLORIDE
     Dosage: 60 MG, AS NEEDED
  6. VIT D [Concomitant]
     Active Substance: VITAMIN D NOS
     Dosage: 1.25 MG, UNK (50,000U WEEKLY)
  7. SPIRIVA RESPIMAT [Concomitant]
     Active Substance: TIOTROPIUM BROMIDE
     Dosage: UNK, DAILY (2.5 INHALER TWO PUFFS DAILY)
  8. AMLODIPINE [Concomitant]
     Active Substance: AMLODIPINE BESYLATE
     Dosage: 10 MG, DAILY
  9. ASPIRIN 81 [Concomitant]
     Active Substance: ASPIRIN
     Dosage: 81 MG, ALTERNATE DAY
  10. BOSULIF [Suspect]
     Active Substance: BOSUTINIB MONOHYDRATE
     Dosage: 400 MG, DAILY (1 TABLET BY MOUTH EVERY DAY)
     Route: 048
     Dates: start: 201807, end: 2018
  11. BOSULIF [Suspect]
     Active Substance: BOSUTINIB MONOHYDRATE
     Dosage: 600 MG, UNK(6 OF THE 100MG TABLETS )
  12. ESTRACE [Concomitant]
     Active Substance: ESTRADIOL
     Dosage: UNK, AS NEEDED (3 TIMES/WEEK)
  13. BOSULIF [Suspect]
     Active Substance: BOSUTINIB MONOHYDRATE
     Indication: CHRONIC MYELOID LEUKAEMIA
     Dosage: 400 MG, ONCE A DAY (FOUR 100 MG TABLETS)
  14. OLMESARTAN HCT [Concomitant]
     Active Substance: HYDROCHLOROTHIAZIDE\OLMESARTAN MEDOXOMIL
     Indication: HYPERTENSION
     Dosage: 1 DF, DAILY (40?25 TAB 1 DAILY)
     Route: 048
  15. ALBUTEROL. [Concomitant]
     Active Substance: ALBUTEROL
     Dosage: 90 UG, AS NEEDED
     Route: 055
  16. LASIX [Concomitant]
     Active Substance: FUROSEMIDE
     Dosage: 40 MG, AS NEEDED (40 MG 1/DAY AS NEEDED)
  17. CLONIDINE. [Concomitant]
     Active Substance: CLONIDINE
     Dosage: 0.1 MG, AS NEEDED
  18. FUROSEMIDE. [Concomitant]
     Active Substance: FUROSEMIDE
     Dosage: 40 MG, AS NEEDED (40 MG 1/DAY AS NEEDED)
  19. CITRUCEL [Concomitant]
     Active Substance: METHYLCELLULOSE (4000 MPA.S)
     Dosage: 2 DF, 1X/DAY (2 IN AM)
  20. TYLENOL EXTRA STRENGTH [Concomitant]
     Active Substance: ACETAMINOPHEN
     Dosage: 500 MG, AS NEEDED
  21. MYRBETRIQ [Concomitant]
     Active Substance: MIRABEGRON
     Dosage: UNK, DAILY
  22. AMOXI?CLAV [Concomitant]
     Active Substance: AMOXICILLIN\CLAVULANATE POTASSIUM
     Dosage: UNK, DAILY (500?125 1 DAILY)
  23. VESICARE [Concomitant]
     Active Substance: SOLIFENACIN SUCCINATE
     Dosage: 5 MG, DAILY
  24. PANTOPRAZOLE [Concomitant]
     Active Substance: PANTOPRAZOLE
     Dosage: 40 MG, DAILY
  25. FLONASE [Concomitant]
     Active Substance: FLUTICASONE PROPIONATE
     Dosage: UNK, AS NEEDED
     Route: 055
  26. ZOFRAN [Concomitant]
     Active Substance: ONDANSETRON HYDROCHLORIDE
     Dosage: UNK, AS NEEDED (8 M )
  27. TYLENOL PM [Concomitant]
     Active Substance: ACETAMINOPHEN\DIPHENHYDRAMINE
     Dosage: UNK, AS NEEDED (DIPHENHYDRAMINE HYDROCHLORIDE 25MG, PARACETAMOL 500MG)
  28. ACIDOPHILUS [Concomitant]
     Active Substance: LACTOBACILLUS ACIDOPHILUS
     Dosage: UNK, DAILY (1 DAILY)

REACTIONS (23)
  - Malaise [Unknown]
  - Rash [Recovering/Resolving]
  - Dyspnoea [Not Recovered/Not Resolved]
  - Joint swelling [Not Recovered/Not Resolved]
  - Peripheral swelling [Not Recovered/Not Resolved]
  - Death [Fatal]
  - Abdominal pain upper [Not Recovered/Not Resolved]
  - Intestinal obstruction [Not Recovered/Not Resolved]
  - Blood pressure increased [Not Recovered/Not Resolved]
  - Daydreaming [Unknown]
  - Fatigue [Not Recovered/Not Resolved]
  - Vomiting [Unknown]
  - Panic reaction [Unknown]
  - Condition aggravated [Not Recovered/Not Resolved]
  - Neoplasm progression [Unknown]
  - Diarrhoea [Not Recovered/Not Resolved]
  - Weight increased [Unknown]
  - Product dispensing error [Unknown]
  - Nausea [Not Recovered/Not Resolved]
  - Asthma [Unknown]
  - Asthenia [Not Recovered/Not Resolved]
  - Body height decreased [Unknown]
  - Cough [Not Recovered/Not Resolved]

NARRATIVE: CASE EVENT DATE: 2018
